FAERS Safety Report 9753480 (Version 2)
Quarter: 2014Q1

REPORT INFORMATION
  Report Type: Spontaneous
  Country: US (occurrence: None)
  Receive Date: 20131211
  Receipt Date: 20140107
  Transmission Date: 20141002
  Serious: Yes (Hospitalization, Disabling, Other)
  Sender: FDA-Public Use
  Company Number: 2013P1021660

PATIENT
  Age: 58 Year
  Sex: Female
  Weight: 61.24 kg

DRUGS (3)
  1. CIPROFLOXACIN [Suspect]
     Indication: CYSTITIS
     Route: 048
     Dates: start: 20111116, end: 20111119
  2. LEVOTHYROXINE [Concomitant]
  3. VITAMIN DRINK (WITH VITAMIN B AND C) [Concomitant]

REACTIONS (5)
  - Anaphylactic shock [None]
  - Migraine [None]
  - Apparent death [None]
  - Amnesia [None]
  - Brain oedema [None]
